FAERS Safety Report 15762561 (Version 2)
Quarter: 2019Q1

REPORT INFORMATION
  Report Type: Spontaneous
  Country: FR (occurrence: FR)
  Receive Date: 20181226
  Receipt Date: 20190116
  Transmission Date: 20190417
  Serious: Yes (Other)
  Sender: FDA-Public Use
  Company Number: FR-MYLANLABS-2018M1095191

PATIENT
  Age: 27 Year
  Sex: Female
  Weight: 42 kg

DRUGS (7)
  1. DOXORUBICIN [Suspect]
     Active Substance: DOXORUBICIN
     Indication: DIFFUSE LARGE B-CELL LYMPHOMA
     Dosage: UNK, CYCLE
  2. CYCLOPHOSPHAMIDE. [Suspect]
     Active Substance: CYCLOPHOSPHAMIDE
     Indication: DIFFUSE LARGE B-CELL LYMPHOMA
     Dosage: UNK UNK, CYCLE
  3. VINCRISTINE [Suspect]
     Active Substance: VINCRISTINE
     Indication: DIFFUSE LARGE B-CELL LYMPHOMA
     Dosage: UNK UNK, CYCLE
  4. PREDNISONE. [Suspect]
     Active Substance: PREDNISONE
     Indication: DIFFUSE LARGE B-CELL LYMPHOMA
     Dosage: UNK UNK, CYCLE
  5. BLEOMYCIN [Suspect]
     Active Substance: BLEOMYCIN SULFATE
     Indication: DIFFUSE LARGE B-CELL LYMPHOMA
     Dosage: UNK UNK, CYCLE
  6. RITUXIMAB. [Suspect]
     Active Substance: RITUXIMAB
     Indication: DIFFUSE LARGE B-CELL LYMPHOMA
     Dosage: UNK UNK, CYCLE
  7. METHOTREXATE. [Suspect]
     Active Substance: METHOTREXATE
     Indication: DIFFUSE LARGE B-CELL LYMPHOMA
     Dosage: UNK UNK, CYCLE
     Route: 037

REACTIONS (10)
  - Autoimmune haemolytic anaemia [Recovering/Resolving]
  - Lymphopenia [Unknown]
  - Condition aggravated [Unknown]
  - Lymphoproliferative disorder [Recovering/Resolving]
  - Primary immunodeficiency syndrome [Unknown]
  - Granuloma [Recovering/Resolving]
  - Epstein-Barr virus infection [Unknown]
  - Combined immunodeficiency [Unknown]
  - Neutropenia [Recovering/Resolving]
  - Skin disorder [Recovering/Resolving]
